FAERS Safety Report 22158024 (Version 1)
Quarter: 2023Q1

REPORT INFORMATION
  Report Type: Spontaneous
  Country: JP (occurrence: JP)
  Receive Date: 20230330
  Receipt Date: 20230330
  Transmission Date: 20230417
  Serious: Yes (Other)
  Sender: FDA-Public Use
  Company Number: JP-009507513-2303JPN010084

PATIENT
  Age: 77 Year
  Sex: Male

DRUGS (1)
  1. PEMBROLIZUMAB [Suspect]
     Active Substance: PEMBROLIZUMAB
     Indication: Lung adenocarcinoma
     Dosage: 200 MG/M2 EVERY THREE WEEKS

REACTIONS (3)
  - Bronchiolitis [Recovered/Resolved]
  - Cholangitis sclerosing [Recovered/Resolved]
  - Incorrect dose administered [Unknown]
